FAERS Safety Report 8555511-4 (Version None)
Quarter: 2012Q3

REPORT INFORMATION
  Report Type: 
  Country: None (occurrence: None)
  Receive Date: 20120731
  Receipt Date: 20120224
  Transmission Date: 20120928
  Serious: Yes (Other)
  Sender: FDA-Public Use
  Company Number: US-ASTRAZENECA-2011SE01577

PATIENT
  Age: 53 Year
  Sex: Male

DRUGS (2)
  1. SEROQUEL [Suspect]
     Route: 048
  2. SEROQUEL [Suspect]
     Indication: BIPOLAR I DISORDER
     Route: 048

REACTIONS (9)
  - FOOD CRAVING [None]
  - ADVERSE EVENT [None]
  - SUICIDAL IDEATION [None]
  - MENTAL DISORDER [None]
  - INSOMNIA [None]
  - DISTURBANCE IN SOCIAL BEHAVIOUR [None]
  - TACHYPHRENIA [None]
  - INCORRECT DOSE ADMINISTERED [None]
  - HUNGER [None]
